FAERS Safety Report 13446234 (Version 2)
Quarter: 2018Q2

REPORT INFORMATION
  Report Type: Spontaneous
  Country: US (occurrence: US)
  Receive Date: 20170417
  Receipt Date: 20180615
  Transmission Date: 20180711
  Serious: Yes (Other)
  Sender: FDA-Public Use
  Company Number: US-SUN PHARMACEUTICAL INDUSTRIES LTD-2017US-138325

PATIENT
  Sex: Female

DRUGS (4)
  1. OXYCODONE [Suspect]
     Active Substance: OXYCODONE
     Indication: PRODUCT USED FOR UNKNOWN INDICATION
     Dosage: UNK, Q4H
     Route: 063
  2. OXYCODONE [Suspect]
     Active Substance: OXYCODONE
     Dosage: UNK, Q4H
     Route: 064
  3. OXYCODONE [Suspect]
     Active Substance: OXYCODONE
     Dosage: UNK, Q4H
     Route: 064
  4. OXYCODONE [Suspect]
     Active Substance: OXYCODONE
     Indication: PRODUCT USED FOR UNKNOWN INDICATION
     Dosage: UNK, Q4H
     Route: 063

REACTIONS (3)
  - Drug dependence [Unknown]
  - Drug withdrawal syndrome [Unknown]
  - Foetal exposure during pregnancy [Recovered/Resolved]
